FAERS Safety Report 16901495 (Version 3)
Quarter: 2025Q4

REPORT INFORMATION
  Report Type: Spontaneous
  Country: EU (occurrence: EU)
  Receive Date: 20191009
  Receipt Date: 20251226
  Transmission Date: 20260118
  Serious: Yes (Hospitalization)
  Sender: AUROBINDO
  Company Number: None

PATIENT
  Age: 78 Year
  Sex: Female
  Weight: 90 kg

DRUGS (3)
  1. PRAVASTATIN SODIUM [Interacting]
     Active Substance: PRAVASTATIN SODIUM
     Indication: Product used for unknown indication
     Dosage: 10 MILLIGRAM, ONCE A DAY
     Route: 061
  2. FLUINDIONE [Suspect]
     Active Substance: FLUINDIONE
     Indication: Atrial fibrillation
     Dosage: 30 MILLIGRAM, ONCE A DAY
     Route: 061
  3. ACETAMINOPHEN\BELLADONNA LEAF\CAFFEINE\OPIUM [Interacting]
     Active Substance: ACETAMINOPHEN\BELLADONNA LEAF\CAFFEINE\OPIUM
     Indication: Product used for unknown indication
     Dosage: 3 DOSAGE FORM, ONCE A DAY
     Route: 061

REACTIONS (2)
  - Epistaxis [Recovered/Resolved]
  - Drug interaction [Unknown]

NARRATIVE: CASE EVENT DATE: 20180901
